FAERS Safety Report 4714448-9 (Version None)
Quarter: 2005Q3

REPORT INFORMATION
  Report Type: 
  Country: None (occurrence: None)
  Receive Date: 20050712
  Receipt Date: 20050706
  Transmission Date: 20060218
  Serious: Yes (Hospitalization, Other)
  Sender: FDA-Public Use
  Company Number: FRWYE805006JUL05

PATIENT
  Age: 40 Year
  Sex: Male

DRUGS (1)
  1. EFFEXOR [Suspect]
     Indication: DEPRESSION
     Dosage: 2 DOSES DAILY ORAL
     Route: 048
     Dates: start: 20020101

REACTIONS (1)
  - ARTERIOSPASM CORONARY [None]
